FAERS Safety Report 6719641-1 (Version None)
Quarter: 2010Q2

REPORT INFORMATION
  Report Type: 
  Country: None (occurrence: None)
  Receive Date: 20100507
  Receipt Date: 20100427
  Transmission Date: 20101027
  Serious: No
  Sender: FDA-Public Use
  Company Number: 2010S1000099-002

PATIENT
  Age: 61 Year
  Sex: Male

DRUGS (2)
  1. PITAVASTATIN [Suspect]
     Indication: DYSLIPIDAEMIA
     Dosage: 2MG PO
     Route: 048
     Dates: start: 20070901, end: 20100123
  2. MEQUITAZINE [Concomitant]

REACTIONS (5)
  - HAEMATOCRIT DECREASED [None]
  - HAEMOGLOBIN DECREASED [None]
  - PLATELET COUNT DECREASED [None]
  - RED BLOOD CELL COUNT DECREASED [None]
  - WHITE BLOOD CELL COUNT DECREASED [None]
